FAERS Safety Report 13554458 (Version 1)
Quarter: 2017Q2

REPORT INFORMATION
  Report Type: Spontaneous
  Country: US (occurrence: US)
  Receive Date: 20170517
  Receipt Date: 20170517
  Transmission Date: 20170830
  Serious: Yes (Other)
  Sender: FDA-Public Use
  Company Number: None

PATIENT
  Age: 62 Year
  Sex: Female
  Weight: 114.76 kg

DRUGS (1)
  1. OLMESARTAN HCT 40/25 [Suspect]
     Active Substance: HYDROCHLOROTHIAZIDE\OLMESARTAN MEDOXOMIL
     Indication: HYPERTENSION
     Dosage: 40MG/25MG ONCE DAILY BY MOUTH
     Route: 048
     Dates: start: 20170101, end: 20170217

REACTIONS (4)
  - Blood pressure inadequately controlled [None]
  - Product substitution issue [None]
  - Fatigue [None]
  - Headache [None]

NARRATIVE: CASE EVENT DATE: 20170101
